FAERS Safety Report 11616313 (Version 1)
Quarter: 2015Q4

REPORT INFORMATION
  Report Type: Spontaneous
  Country: DK (occurrence: DK)
  Receive Date: 20151009
  Receipt Date: 20151009
  Transmission Date: 20160304
  Serious: Yes (Other)
  Sender: FDA-Public Use
  Company Number: DK-FERRINGPH-2014FE00787

PATIENT

DRUGS (1)
  1. PICOPREP [Suspect]
     Active Substance: CITRIC ACID MONOHYDRATE\MAGNESIUM OXIDE\SODIUM PICOSULFATE
     Indication: COLONOSCOPY
     Dosage: 2 SACHET OF POWDER, UNK
     Route: 048
     Dates: start: 20131113, end: 20131113

REACTIONS (21)
  - Malaise [Recovered/Resolved]
  - Exercise tolerance decreased [Unknown]
  - Neuralgia [Unknown]
  - Loss of consciousness [Unknown]
  - Headache [Not Recovered/Not Resolved]
  - Tooth fracture [Unknown]
  - Malocclusion [Unknown]
  - Tooth injury [Not Recovered/Not Resolved]
  - Pain in jaw [Unknown]
  - Gingival injury [Unknown]
  - Contusion [Unknown]
  - Diarrhoea [Unknown]
  - Dizziness [Recovered/Resolved]
  - Toothache [Unknown]
  - Loose tooth [Unknown]
  - Fall [Unknown]
  - Abdominal pain upper [Recovered/Resolved]
  - Syncope [Recovered/Resolved]
  - Mastication disorder [Unknown]
  - Dehydration [Unknown]
  - Sensory disturbance [Unknown]

NARRATIVE: CASE EVENT DATE: 20131114
